FAERS Safety Report 5264398-7 (Version None)
Quarter: 2007Q1

REPORT INFORMATION
  Report Type: 
  Country: None (occurrence: None)
  Receive Date: 20070309
  Receipt Date: 20070301
  Transmission Date: 20070707
  Serious: Yes (Hospitalization)
  Sender: FDA-Public Use
  Company Number: 236791

PATIENT
  Sex: 0

DRUGS (5)
  1. AVASTIN [Suspect]
     Indication: ADENOCARCINOMA
  2. COUMADIN [Concomitant]
  3. FLUOROURACIL [Concomitant]
  4. LEUCOVORIN CALCIUM [Concomitant]
  5. OXALIPLATIN [Concomitant]

REACTIONS (1)
  - INTERNATIONAL NORMALISED RATIO INCREASED [None]
